FAERS Safety Report 9298293 (Version 1)
Quarter: 2013Q2

REPORT INFORMATION
  Report Type: Spontaneous
  Country: CN (occurrence: CN)
  Receive Date: 20130520
  Receipt Date: 20130520
  Transmission Date: 20140414
  Serious: Yes (Hospitalization, Other)
  Sender: FDA-Public Use
  Company Number: CN-JNJFOC-20130508718

PATIENT
  Age: 66 Year
  Sex: Male

DRUGS (1)
  1. TRAMADOL/APAP [Suspect]
     Indication: PAIN
     Dosage: 2 TABLETS 6 HOURLY (2 TABLETS 4 TIMES A DAY)
     Route: 048
     Dates: start: 20120905, end: 20120912

REACTIONS (1)
  - Petechiae [Recovered/Resolved]
